FAERS Safety Report 12690052 (Version 1)
Quarter: 2016Q3

REPORT INFORMATION
  Report Type: Spontaneous
  Country: FI (occurrence: FI)
  Receive Date: 20160826
  Receipt Date: 20160826
  Transmission Date: 20161109
  Serious: Yes (Other)
  Sender: FDA-Public Use
  Company Number: FI-BIOGEN-2016BI00283480

PATIENT
  Age: 51 Year
  Sex: Male

DRUGS (8)
  1. AVONEX [Suspect]
     Active Substance: INTERFERON BETA-1A
     Indication: MULTIPLE SCLEROSIS
     Route: 030
     Dates: start: 2010, end: 20160716
  2. BURANA SLOW (IBUPROFEN) [Concomitant]
     Indication: PYREXIA
  3. MULTIVITA PLUS M (MULTIVITAMIN PRODUCT) [Concomitant]
     Indication: VITAMIN SUPPLEMENTATION
     Route: 048
     Dates: start: 1999
  4. AMANTADIN-RATIOPHARM (AMANTADINE) [Concomitant]
     Indication: FATIGUE
     Route: 048
     Dates: start: 2001
  5. VITAMIN D3 [Concomitant]
     Active Substance: CHOLECALCIFEROL
     Indication: VITAMIN D DEFICIENCY
     Route: 048
     Dates: start: 2014
  6. BURANA SLOW (IBUPROFEN) [Concomitant]
     Indication: PAIN
     Route: 048
     Dates: start: 1999
  7. OFTAGEL (CARBOMER) [Concomitant]
     Indication: DRY EYE
     Dosage: 2.5
     Route: 047
     Dates: start: 2016
  8. ESOMEPRAZOL SANDOZ (ESOMEPRAZOLE) [Concomitant]
     Indication: PROPHYLAXIS
     Route: 048
     Dates: start: 2016

REACTIONS (3)
  - Headache [Recovered/Resolved]
  - Cellulitis [Not Recovered/Not Resolved]
  - Pyrexia [Recovered/Resolved]

NARRATIVE: CASE EVENT DATE: 20160716
